FAERS Safety Report 4264749-6 (Version None)
Quarter: 2004Q1

REPORT INFORMATION
  Report Type: 
  Country: None (occurrence: None)
  Receive Date: 20040105
  Receipt Date: 20031219
  Transmission Date: 20041129
  Serious: Yes (Death, Congenital Anomaly)
  Sender: FDA-Public Use
  Company Number: STA-AE-03-MTX-208

PATIENT
  Sex: Male

DRUGS (2)
  1. METHOTREXATE [Suspect]
     Indication: ABORTION INDUCED
     Dosage: 50 MG/M^2 1X PER 1 CYCLE, UNK
  2. MISOPROSTOL [Suspect]
     Indication: ABORTION INDUCED
     Dosage: 800 UG 1X PER 1 CYCLE, UNK

REACTIONS (18)
  - ANOMALY OF EXTERNAL EAR CONGENITAL [None]
  - APGAR SCORE LOW [None]
  - BRADYCARDIA FOETAL [None]
  - BREECH PRESENTATION [None]
  - CAESAREAN SECTION [None]
  - CONGENITAL ANOMALY [None]
  - CONGENITAL NAIL DISORDER [None]
  - CYANOSIS [None]
  - DRUG INEFFECTIVE [None]
  - FOETAL GROWTH RETARDATION [None]
  - HYPOTONIA [None]
  - LIMB MALFORMATION [None]
  - LOW SET EARS [None]
  - MATERNAL DRUGS AFFECTING FOETUS [None]
  - MICROGNATHIA [None]
  - PREMATURE BABY [None]
  - SYNDACTYLY [None]
  - TALIPES [None]
